FAERS Safety Report 19673320 (Version 1)
Quarter: 2021Q3

REPORT INFORMATION
  Report Type: Spontaneous
  Country: US (occurrence: US)
  Receive Date: 20210806
  Receipt Date: 20210806
  Transmission Date: 20211014
  Serious: Yes (Life-Threatening, Hospitalization, Other)
  Sender: FDA-Public Use
  Company Number: None

PATIENT
  Age: 48 Year
  Sex: Female
  Weight: 79.4 kg

DRUGS (1)
  1. REGEN?COV [Suspect]
     Active Substance: CASIRIVIMAB\IMDEVIMAB
     Indication: COVID-19
     Dosage: ?          OTHER FREQUENCY:ONCE;?
     Route: 041
     Dates: start: 20210805, end: 20210805

REACTIONS (6)
  - Angioedema [None]
  - Urticaria [None]
  - Vomiting [None]
  - Swollen tongue [None]
  - Anaphylactic reaction [None]
  - Eye swelling [None]

NARRATIVE: CASE EVENT DATE: 20210805
